FAERS Safety Report 10385927 (Version 1)
Quarter: 2014Q3

REPORT INFORMATION
  Report Type: Spontaneous
  Country: GB (occurrence: None)
  Receive Date: 20140812
  Receipt Date: 20140812
  Transmission Date: 20150326
  Serious: Yes (Life-Threatening, Other)
  Sender: FDA-Public Use
  Company Number: FK201403198

PATIENT
  Age: 22 Year
  Sex: Male

DRUGS (2)
  1. POTASSIUM CHLORIDE (MANUFACTURER UNKNOWN) (POTASSIUM CHLORIDE) [Suspect]
     Active Substance: POTASSIUM CHLORIDE
     Indication: PRODUCT USED FOR UNKNOWN INDICATION
  2. ANTIBIOTIC (CHLORAMPHENICOL) [Concomitant]

REACTIONS (7)
  - Brain oedema [None]
  - Road traffic accident [None]
  - Cerebrospinal fluid leakage [None]
  - Respiratory arrest [None]
  - Head injury [None]
  - Herpes simplex encephalitis [None]
  - Accidental overdose [None]
